FAERS Safety Report 17008695 (Version 1)
Quarter: 2019Q4

REPORT INFORMATION
  Report Type: Spontaneous
  Country: DE (occurrence: DE)
  Receive Date: 20191108
  Receipt Date: 20191108
  Transmission Date: 20200122
  Serious: No
  Sender: FDA-Public Use
  Company Number: DE-HORMOSAN PHARMA GMBH-2019-01901

PATIENT
  Sex: Female

DRUGS (1)
  1. YIZNELL 0.03 MG/3 MG [Suspect]
     Active Substance: DROSPIRENONE\ETHINYL ESTRADIOL
     Indication: CONTRACEPTION
     Dosage: 1 DOSAGE FORM, QD (STARTED 5 DAYS AGO)
     Route: 048

REACTIONS (2)
  - Product substitution issue [Unknown]
  - Pustule [Not Recovered/Not Resolved]
